FAERS Safety Report 19169118 (Version 1)
Quarter: 2021Q2

REPORT INFORMATION
  Report Type: Spontaneous
  Country: US (occurrence: US)
  Receive Date: 20210422
  Receipt Date: 20210422
  Transmission Date: 20210717
  Serious: Yes (Other)
  Sender: FDA-Public Use
  Company Number: US-NEUROCRINE BIOSCIENCES INC.-2021NBI01744

PATIENT

DRUGS (1)
  1. INGREZZA [Suspect]
     Active Substance: VALBENAZINE
     Indication: TARDIVE DYSKINESIA
     Dosage: 80 MILLIGRAM, QD
     Route: 065

REACTIONS (7)
  - Adverse event [Unknown]
  - Speech disorder [Unknown]
  - Muscular weakness [Unknown]
  - Anxiety [Unknown]
  - Posture abnormal [Unknown]
  - General physical health deterioration [Unknown]
  - Decreased gait velocity [Unknown]
